FAERS Safety Report 8022265 (Version 5)
Quarter: 2014Q4

REPORT INFORMATION
  Report Type: Spontaneous
  Country: US (occurrence: US)
  Receive Date: 20110705
  Receipt Date: 20141118
  Transmission Date: 20150529
  Serious: Yes (Other)
  Sender: FDA-Public Use
  Company Number: US-ASTRAZENECA-2011SE38444

PATIENT
  Age: 54 Year
  Sex: Female
  Weight: 90.7 kg

DRUGS (29)
  1. ALEVE [Concomitant]
     Active Substance: NAPROXEN SODIUM
     Route: 048
  2. ASPIRIN. [Concomitant]
     Active Substance: ASPIRIN
     Indication: ISCHAEMIC HEART DISEASE PROPHYLAXIS
     Route: 048
  3. CLOBETASOL [Concomitant]
     Active Substance: CLOBETASOL
     Dosage: 0.005 PERCENTAGE
  4. PREDNISONE. [Concomitant]
     Active Substance: PREDNISONE
     Route: 048
  5. TOPROL XL [Suspect]
     Active Substance: METOPROLOL SUCCINATE
     Indication: HYPERTENSION
     Dosage: ONE HALF 50 MG TABLET IN THE AM AND ONE 50 MG TABLET IN PM
     Route: 048
  6. PLAVIX [Concomitant]
     Active Substance: CLOPIDOGREL BISULFATE
     Route: 048
  7. ALEVE [Concomitant]
     Active Substance: NAPROXEN SODIUM
     Dosage: AS REQUIRED, OVER THE COUNTER
     Route: 048
  8. METOPROLOL TARTRATE. [Concomitant]
     Active Substance: METOPROLOL TARTRATE
     Route: 048
  9. IBUPROFEN. [Concomitant]
     Active Substance: IBUPROFEN
     Dosage: PRN
     Route: 048
  10. MULTIVITAMIN [Concomitant]
     Active Substance: VITAMINS
     Route: 048
  11. PREDNISONE. [Concomitant]
     Active Substance: PREDNISONE
     Route: 048
  12. ATACAND [Suspect]
     Active Substance: CANDESARTAN CILEXETIL
     Indication: HYPERTENSION
     Route: 048
  13. CRESTOR [Suspect]
     Active Substance: ROSUVASTATIN CALCIUM
     Indication: BLOOD CHOLESTEROL INCREASED
     Route: 048
     Dates: start: 2011
  14. KLONOPIN [Concomitant]
     Active Substance: CLONAZEPAM
     Indication: MENTAL DISORDER
     Route: 048
  15. SIMVASTATIN. [Concomitant]
     Active Substance: SIMVASTATIN
     Route: 048
  16. ATACAND [Suspect]
     Active Substance: CANDESARTAN CILEXETIL
     Indication: HYPERTENSION
     Route: 048
     Dates: start: 201106
  17. LORTAB [Concomitant]
     Active Substance: ACETAMINOPHEN\HYDROCODONE BITARTRATE
     Dosage: 5/500 MG PO EVERY FOUR HOURS AND PRN
     Route: 048
  18. TOPROL XL [Suspect]
     Active Substance: METOPROLOL SUCCINATE
     Indication: HYPERTENSION
     Route: 048
     Dates: start: 2005
  19. LEVOTHYROXINE [Concomitant]
     Active Substance: LEVOTHYROXINE
     Route: 048
  20. LISINOPRIL HCTZ [Concomitant]
     Active Substance: HYDROCHLOROTHIAZIDE\LISINOPRIL
     Dosage: 10/12.5 MG EVERY DAY
     Route: 048
  21. ASPIRIN. [Concomitant]
     Active Substance: ASPIRIN
     Indication: ISCHAEMIC HEART DISEASE PROPHYLAXIS
     Route: 048
     Dates: start: 2006
  22. PRINZIDE [Concomitant]
     Active Substance: HYDROCHLOROTHIAZIDE\LISINOPRIL
     Dosage: 20 MG- 12.5 MG AS DIRECTED
     Route: 048
  23. IBUPROFEN. [Concomitant]
     Active Substance: IBUPROFEN
     Route: 048
  24. ATACAND HCT [Suspect]
     Active Substance: CANDESARTAN CILEXETIL\HYDROCHLOROTHIAZIDE
     Indication: HYPERTENSION
     Dosage: 16/12 MG DAILY
     Route: 048
  25. LISINOPRIL. [Suspect]
     Active Substance: LISINOPRIL
     Route: 048
  26. TOPROL XL [Suspect]
     Active Substance: METOPROLOL SUCCINATE
     Indication: HYPERTENSION
     Route: 048
     Dates: start: 201106
  27. NORVASC [Suspect]
     Active Substance: AMLODIPINE BESYLATE
     Route: 065
  28. ATACAND HCT [Suspect]
     Active Substance: CANDESARTAN CILEXETIL\HYDROCHLOROTHIAZIDE
     Indication: HYPERTENSION
     Dosage: 32 MG/25 MG DAILY
     Route: 048
  29. CRESTOR [Suspect]
     Active Substance: ROSUVASTATIN CALCIUM
     Indication: BLOOD CHOLESTEROL INCREASED
     Route: 048
     Dates: start: 2006, end: 2013

REACTIONS (22)
  - Cerebrovascular accident [Unknown]
  - Metabolic syndrome [Unknown]
  - Peripheral vascular disorder [Unknown]
  - Blood pressure abnormal [Not Recovered/Not Resolved]
  - Hypothyroidism [Unknown]
  - Essential hypertension [Unknown]
  - Myalgia [Recovered/Resolved]
  - Memory impairment [Unknown]
  - Bone disorder [Unknown]
  - Off label use [Not Recovered/Not Resolved]
  - Carotid artery stenosis [Unknown]
  - Blood pressure decreased [Unknown]
  - Osteoarthritis [Unknown]
  - Muscular weakness [Unknown]
  - Drug hypersensitivity [Unknown]
  - Transient ischaemic attack [Unknown]
  - Adverse event [Unknown]
  - Chondropathy [Unknown]
  - Nasopharyngitis [Unknown]
  - Movement disorder [Recovered/Resolved]
  - Gait disturbance [Recovered/Resolved]
  - Drug ineffective [Unknown]

NARRATIVE: CASE EVENT DATE: 2005
